FAERS Safety Report 14987761 (Version 3)
Quarter: 2019Q2

REPORT INFORMATION
  Report Type: Report from Study
  Country: CA (occurrence: CA)
  Receive Date: 20180608
  Receipt Date: 20190513
  Transmission Date: 20190711
  Serious: Yes (Other)
  Sender: FDA-Public Use
  Company Number: CA-OTSUKA-2018_013915

PATIENT
  Sex: Female

DRUGS (7)
  1. TOLVAPTAN [Suspect]
     Active Substance: TOLVAPTAN
     Dosage: 15 MG, QD (IN EVENING)
     Route: 048
     Dates: start: 20190303
  2. TELMISARTAN. [Concomitant]
     Active Substance: TELMISARTAN
     Indication: HYPERTENSION
     Dosage: UNK
     Route: 065
  3. TOLVAPTAN [Suspect]
     Active Substance: TOLVAPTAN
     Indication: CONGENITAL CYSTIC KIDNEY DISEASE
     Dosage: 45 MG, QD (IN MORNING)
     Route: 048
     Dates: start: 20180130, end: 20180808
  4. TOLVAPTAN [Suspect]
     Active Substance: TOLVAPTAN
     Dosage: 15 MG, QD (IN EVENING)
     Route: 048
     Dates: start: 20180130, end: 20180808
  5. TOLVAPTAN [Suspect]
     Active Substance: TOLVAPTAN
     Dosage: 60 MG, QD (IN THE MORNING)
     Route: 048
     Dates: start: 20180809, end: 20190302
  6. TOLVAPTAN [Suspect]
     Active Substance: TOLVAPTAN
     Dosage: 45 MG, QD (IN MORNING)
     Route: 048
     Dates: start: 20190303
  7. TOLVAPTAN [Suspect]
     Active Substance: TOLVAPTAN
     Dosage: 30 MG, QD (IN THE EVENING)
     Route: 048
     Dates: start: 20180809, end: 20190302

REACTIONS (5)
  - Haematology test abnormal [Unknown]
  - Product dose omission [Unknown]
  - Hepatic cyst [Recovering/Resolving]
  - Hypotension [Not Recovered/Not Resolved]
  - Post procedural haemorrhage [Not Recovered/Not Resolved]
